FAERS Safety Report 7009314-2 (Version None)
Quarter: 2010Q3

REPORT INFORMATION
  Report Type: 
  Country: None (occurrence: None)
  Receive Date: 20100923
  Receipt Date: 20100913
  Transmission Date: 20110219
  Serious: Yes (Life-Threatening, Other)
  Sender: FDA-Public Use
  Company Number: AR-NOVOPROD-310799

PATIENT
  Age: 34 Year
  Sex: Female
  Weight: 68 kg

DRUGS (7)
  1. NOVOSEVEN RT [Suspect]
     Indication: HAEMORRHAGE
     Dosage: UNK
     Dates: start: 20100622
  2. NOVOSEVEN RT [Suspect]
     Dosage: UNK
     Dates: start: 20100622
  3. NORADRENALINE                      /00127501/ [Concomitant]
     Dosage: VARIABLE DOSES
     Route: 042
  4. MIDAZOLAM HCL [Concomitant]
     Dosage: 20 VIALS DAILY
  5. FENTANYL CITRATE [Concomitant]
     Dosage: 8 VIALS DAILY
  6. LACTATED RINGER'S [Concomitant]
     Dosage: 3000 ML, QD
  7. OMEPRAZOLE [Concomitant]
     Dosage: 20 MG, QD
     Route: 042

REACTIONS (1)
  - ACUTE MYOCARDIAL INFARCTION [None]
